FAERS Safety Report 16062594 (Version 2)
Quarter: 2019Q1

REPORT INFORMATION
  Report Type: Report from Study
  Country: US (occurrence: US)
  Receive Date: 20190312
  Receipt Date: 20190319
  Transmission Date: 20190418
  Serious: Yes (Hospitalization, Other)
  Sender: FDA-Public Use
  Company Number: US-GILEAD-2019-0393358

PATIENT
  Age: 65 Year
  Sex: Male
  Weight: 82.99 kg

DRUGS (16)
  1. SILDENAFIL. [Concomitant]
     Active Substance: SILDENAFIL
  2. TRIAMTERENE AND HYDROCHLOROTHIAZIDE [Concomitant]
     Active Substance: HYDROCHLOROTHIAZIDE\TRIAMTERENE
  3. ORENITRAM [Suspect]
     Active Substance: TREPROSTINIL
     Indication: PULMONARY ARTERIAL HYPERTENSION
     Dosage: 0.625 MG, BID
     Route: 048
     Dates: start: 20181019
  4. SPIRIVA [Concomitant]
     Active Substance: TIOTROPIUM BROMIDE MONOHYDRATE
  5. COREG [Concomitant]
     Active Substance: CARVEDILOL
     Dosage: 25 MG
  6. IPRATROPIUM BROMIDE AND ALBUTEROL SULFATE [Concomitant]
     Active Substance: ALBUTEROL SULFATE\IPRATROPIUM BROMIDE
  7. PLAVIX [Concomitant]
     Active Substance: CLOPIDOGREL BISULFATE
  8. CLONIDINE. [Concomitant]
     Active Substance: CLONIDINE
     Dosage: .2 MG
  9. PROAIR HFA [Concomitant]
     Active Substance: ALBUTEROL SULFATE
  10. AMLODIPINE [Concomitant]
     Active Substance: AMLODIPINE BESYLATE
  11. NORCO [Concomitant]
     Active Substance: ACETAMINOPHEN\HYDROCODONE BITARTRATE
  12. PREDNISONE. [Concomitant]
     Active Substance: PREDNISONE
  13. AMBRISENTAN [Suspect]
     Active Substance: AMBRISENTAN
     Indication: PULMONARY HYPERTENSION
     Dosage: 10 MG, QD
     Route: 065
     Dates: start: 20190201
  14. ASPIRIN [ACETYLSALICYLIC ACID] [Concomitant]
     Active Substance: ASPIRIN
  15. PULMICORT TURBUHALER [Concomitant]
     Active Substance: BUDESONIDE
  16. GABAPENTIN. [Concomitant]
     Active Substance: GABAPENTIN
     Dosage: 300 MG

REACTIONS (3)
  - Emphysema [Unknown]
  - Dyspnoea [Unknown]
  - Drug ineffective [Unknown]
